FAERS Safety Report 8464273-0 (Version None)
Quarter: 2012Q2

REPORT INFORMATION
  Report Type: 
  Country: None (occurrence: None)
  Receive Date: 20120625
  Receipt Date: 20120618
  Transmission Date: 20120825
  Serious: Yes (Other)
  Sender: FDA-Public Use
  Company Number: US-PFIZER INC-2012113321

PATIENT
  Sex: Male
  Weight: 94.331 kg

DRUGS (4)
  1. XALATAN [Suspect]
     Indication: INTRAOCULAR PRESSURE INCREASED
  2. DOXAZOSIN MESILATE [Concomitant]
     Indication: HYPERTENSION
     Dosage: 1 MG, 1X/DAY
  3. XALATAN [Suspect]
     Indication: GLAUCOMA
     Dosage: DAILY
     Dates: end: 20100101
  4. DOXAZOSIN MESILATE [Concomitant]
     Indication: PROSTATIC DISORDER

REACTIONS (1)
  - INTRAOCULAR PRESSURE INCREASED [None]
